FAERS Safety Report 6975197-X (Version None)
Quarter: 2010Q3

REPORT INFORMATION
  Report Type: 
  Country: None (occurrence: None)
  Receive Date: 20100910
  Receipt Date: 20090212
  Transmission Date: 20110219
  Serious: No
  Sender: FDA-Public Use
  Company Number: US-WYE-H08199209

PATIENT
  Age: 14 Year
  Sex: Male

DRUGS (2)
  1. PRISTIQ [Suspect]
     Dosage: 50 MG, FREQUENCY UNSPECIFIED
     Route: 065
  2. PRISTIQ [Suspect]
     Route: 065

REACTIONS (1)
  - INSOMNIA [None]
